FAERS Safety Report 18035099 (Version 1)
Quarter: 2020Q3

REPORT INFORMATION
  Report Type: Spontaneous
  Country: US (occurrence: US)
  Receive Date: 20200717
  Receipt Date: 20200717
  Transmission Date: 20201103
  Serious: No
  Sender: FDA-Public Use
  Company Number: US-STRIDES ARCOLAB LIMITED-2020SP006411

PATIENT
  Age: 32 Year
  Sex: Female

DRUGS (3)
  1. IVERMECTIN. [Suspect]
     Active Substance: IVERMECTIN
     Indication: DEMODICIDOSIS
     Dosage: 1 MG/10LB (4.5 KG) OF BODY WEIGHT GIVEN ONCE AND THEN REPEATED IN A WEEK
     Route: 048
  2. METRONIDAZOLE. [Suspect]
     Active Substance: METRONIDAZOLE
     Dosage: 250 MILLIGRAM, TID
     Route: 048
  3. METRONIDAZOLE. [Suspect]
     Active Substance: METRONIDAZOLE
     Indication: DEMODICIDOSIS
     Dosage: UNK
     Route: 061

REACTIONS (2)
  - Off label use [Unknown]
  - Maternal exposure during pregnancy [Unknown]
